FAERS Safety Report 7028178-4 (Version None)
Quarter: 2010Q4

REPORT INFORMATION
  Report Type: 
  Country: None (occurrence: None)
  Receive Date: 20101005
  Receipt Date: 20100923
  Transmission Date: 20110411
  Serious: Yes (Hospitalization)
  Sender: FDA-Public Use
  Company Number: ZA-SANOFI-AVENTIS-2010SA057072

PATIENT
  Age: 67 Year
  Sex: Male

DRUGS (1)
  1. KETEK [Suspect]
     Dates: start: 20100916

REACTIONS (1)
  - HOSPITALISATION [None]
